FAERS Safety Report 7864672-1 (Version None)
Quarter: 2011Q4

REPORT INFORMATION
  Report Type: 
  Country: None (occurrence: None)
  Receive Date: 20111025
  Receipt Date: 20111010
  Transmission Date: 20120403
  Serious: Yes (Hospitalization, Disabling, Other)
  Sender: FDA-Public Use
  Company Number: 2011MPI00199

PATIENT
  Age: 29 Year
  Sex: Female

DRUGS (5)
  1. OXYCODONE HCL [Concomitant]
  2. OXYCONTIN [Concomitant]
  3. BRENTUXIMAB VEDOTIN (BRENTUXIMAB VEDOTIN) INJECTION [Suspect]
     Indication: HODGKIN'S DISEASE RECURRENT
     Dosage: 1.8 MG/KG, INTRAVENOUS
     Route: 042
     Dates: start: 20110603, end: 20110722
  4. BUDESONIDE EASYHALER (BUDESONIDE) [Concomitant]
  5. RULIDE (ROXITHROMYCIN) [Concomitant]

REACTIONS (12)
  - VISUAL FIELD DEFECT [None]
  - PLEURITIC PAIN [None]
  - LUNG CONSOLIDATION [None]
  - NEUROPATHY PERIPHERAL [None]
  - UNDERWEIGHT [None]
  - PAIN [None]
  - CONJUNCTIVITIS [None]
  - LUNG INFECTION [None]
  - ASTHENIA [None]
  - DYSPNOEA [None]
  - DIPLOPIA [None]
  - METASTASES TO LUNG [None]
